FAERS Safety Report 8323439-0 (Version None)
Quarter: 2012Q2

REPORT INFORMATION
  Report Type: 
  Country: None (occurrence: None)
  Receive Date: 20120430
  Receipt Date: 20120423
  Transmission Date: 20120825
  Serious: Yes (Hospitalization)
  Sender: FDA-Public Use
  Company Number: US-TEVA-335237USA

PATIENT
  Age: 55 Year
  Sex: Male

DRUGS (1)
  1. FLUOROURACIL [Suspect]
     Indication: COLON CANCER RECURRENT
     Dosage: CONTINUOUS INFUSION
     Route: 065

REACTIONS (8)
  - NAUSEA [None]
  - CORONARY ARTERY STENOSIS [None]
  - VENTRICULAR HYPOKINESIA [None]
  - CHEST PAIN [None]
  - ELECTROCARDIOGRAM ST SEGMENT ELEVATION [None]
  - HYPERHIDROSIS [None]
  - EJECTION FRACTION DECREASED [None]
  - DYSPNOEA [None]
